FAERS Safety Report 17374627 (Version 1)
Quarter: 2020Q1

REPORT INFORMATION
  Report Type: Spontaneous
  Country: US (occurrence: US)
  Receive Date: 20200205
  Receipt Date: 20200205
  Transmission Date: 20200409
  Serious: No
  Sender: FDA-Public Use
  Company Number: US-PFIZER INC-2020044821

PATIENT
  Age: 5 Decade
  Sex: Female
  Weight: 68.4 kg

DRUGS (1)
  1. GABAPENTIN. [Suspect]
     Active Substance: GABAPENTIN
     Indication: PAIN
     Dosage: 300 MG, UNK (3-4 TIMES DAILY BY MOUTH)
     Route: 048

REACTIONS (12)
  - Abdominal pain upper [Unknown]
  - Throat irritation [Unknown]
  - Skin discolouration [Unknown]
  - Reaction to excipient [Unknown]
  - Thermal burn [Unknown]
  - Urinary tract infection [Unknown]
  - Gastric disorder [Unknown]
  - Nausea [Unknown]
  - Vomiting [Unknown]
  - Anal incontinence [Unknown]
  - Dyspepsia [Unknown]
  - Anorectal disorder [Unknown]

NARRATIVE: CASE EVENT DATE: 2005
